FAERS Safety Report 5769912-0 (Version None)
Quarter: 2008Q2

REPORT INFORMATION
  Report Type: 
  Country: None (occurrence: None)
  Receive Date: 20080613
  Receipt Date: 20080424
  Transmission Date: 20081010
  Serious: No
  Sender: FDA-Public Use
  Company Number: US-ABBOTT-08P-163-0447123-00

PATIENT
  Sex: Female
  Weight: 102.3 kg

DRUGS (3)
  1. HUMIRA [Suspect]
     Indication: ANKYLOSING SPONDYLITIS
     Route: 058
     Dates: start: 20070401
  2. IBUROFEN [Concomitant]
     Indication: PAIN
     Route: 048
  3. MOLOXICAM [Concomitant]
     Indication: PAIN
     Route: 048

REACTIONS (5)
  - ACCIDENTAL EXPOSURE [None]
  - INJECTION SITE ERYTHEMA [None]
  - INJECTION SITE REACTION [None]
  - INJECTION SITE SWELLING [None]
  - PAIN [None]
